FAERS Safety Report 6576737-5 (Version None)
Quarter: 2010Q1

REPORT INFORMATION
  Report Type: 
  Country: None (occurrence: None)
  Receive Date: 20100210
  Receipt Date: 20100201
  Transmission Date: 20100710
  Serious: Yes (Other)
  Sender: FDA-Public Use
  Company Number: US-PFIZER INC-2010014050

PATIENT
  Sex: Female
  Weight: 76.657 kg

DRUGS (1)
  1. NORVASC [Suspect]
     Indication: HYPERTENSION
     Dosage: 2.5-5MG AS NEEDED
     Dates: end: 20100201

REACTIONS (1)
  - HALLUCINATION [None]
